FAERS Safety Report 8131089-4 (Version None)
Quarter: 2012Q1

REPORT INFORMATION
  Report Type: 
  Country: None (occurrence: None)
  Receive Date: 20120213
  Receipt Date: 20120206
  Transmission Date: 20120608
  Serious: Yes (Hospitalization, Other)
  Sender: FDA-Public Use
  Company Number: US-BAYER-2012-012481

PATIENT
  Age: 42 Year
  Sex: Female

DRUGS (4)
  1. MIRENA [Suspect]
     Indication: MENORRHAGIA
     Dosage: 20 MCG/24HR, CONT
     Route: 015
     Dates: start: 20110407
  2. SINGULAIR [Concomitant]
     Indication: ASTHMA
  3. ADVAIR DISKUS 100/50 [Concomitant]
     Indication: ASTHMA
  4. MIRENA [Suspect]
     Indication: HAEMORRHAGIC OVARIAN CYST

REACTIONS (4)
  - MIGRAINE [None]
  - ANGINA PECTORIS [None]
  - LOSS OF CONSCIOUSNESS [None]
  - HYPERTENSION [None]
